FAERS Safety Report 5188163-4 (Version None)
Quarter: 2006Q4

REPORT INFORMATION
  Report Type: 
  Country: None (occurrence: None)
  Receive Date: 20061214
  Receipt Date: 20061130
  Transmission Date: 20070319
  Serious: Yes (Hospitalization)
  Sender: FDA-Public Use
  Company Number: 6027803

PATIENT
  Age: 18 Year
  Sex: Female

DRUGS (3)
  1. ACICVIR TABLETS (TABLET) (ACICLOVIR) [Suspect]
     Indication: HERPES SIMPLEX
     Dosage: 1000 MG (200 MG, 1 D), ORAL
     Route: 048
     Dates: start: 20061129, end: 20061129
  2. TRAMADOL HCL [Concomitant]
  3. CIPROFLOXACIN [Concomitant]

REACTIONS (5)
  - ASTHENIA [None]
  - CONFUSIONAL STATE [None]
  - DEPRESSED LEVEL OF CONSCIOUSNESS [None]
  - DYSARTHRIA [None]
  - HYPOAESTHESIA [None]
